FAERS Safety Report 10726926 (Version 1)
Quarter: 2015Q1

REPORT INFORMATION
  Report Type: Spontaneous
  Country: RU (occurrence: RU)
  Receive Date: 20150121
  Receipt Date: 20150121
  Transmission Date: 20150721
  Serious: Yes (Hospitalization)
  Sender: FDA-Public Use
  Company Number: RU-ABBVIE-15P-251-1335309-00

PATIENT
  Sex: Female

DRUGS (5)
  1. KIVEXA [Suspect]
     Active Substance: ABACAVIR SULFATE\LAMIVUDINE
     Indication: ANTIRETROVIRAL THERAPY
     Dosage: IN THE MORNING
     Route: 048
  2. ZIAGEN [Suspect]
     Active Substance: ABACAVIR SULFATE
     Indication: ANTIRETROVIRAL THERAPY
     Route: 065
  3. KALETRA [Suspect]
     Active Substance: LOPINAVIR\RITONAVIR
     Indication: ANTIRETROVIRAL THERAPY
     Route: 048
  4. STAG [Suspect]
     Active Substance: STAVUDINE
     Indication: ANTIRETROVIRAL THERAPY
     Route: 048
  5. VIROLAM [Suspect]
     Active Substance: LAMIVUDINE
     Indication: ANTIRETROVIRAL THERAPY
     Route: 065

REACTIONS (9)
  - Blood glucose abnormal [Unknown]
  - Renal pain [Recovered/Resolved]
  - Toxicity to various agents [Unknown]
  - Nausea [Unknown]
  - Protein total decreased [Recovered/Resolved]
  - Conversion disorder [Recovered/Resolved]
  - Ultrasound kidney abnormal [Recovered/Resolved]
  - Maternal exposure during pregnancy [None]
  - Sleep disorder [Recovered/Resolved]
